FAERS Safety Report 12548810 (Version 6)
Quarter: 2017Q2

REPORT INFORMATION
  Report Type: Spontaneous
  Country: US (occurrence: US)
  Receive Date: 20160712
  Receipt Date: 20170630
  Transmission Date: 20170830
  Serious: Yes (Hospitalization, Other)
  Sender: FDA-Public Use
  Company Number: US-GLAXOSMITHKLINE-US2016093406

PATIENT
  Age: 43 Year
  Sex: Female

DRUGS (9)
  1. SPIRIVA [Concomitant]
     Active Substance: TIOTROPIUM BROMIDE MONOHYDRATE
  2. PREDNISONE. [Suspect]
     Active Substance: PREDNISONE
     Indication: PRODUCT USED FOR UNKNOWN INDICATION
     Dosage: UNK
  3. BENLYSTA [Suspect]
     Active Substance: BELIMUMAB
     Indication: SYSTEMIC LUPUS ERYTHEMATOSUS
     Dosage: 10 MG, UNK
     Route: 042
     Dates: end: 201603
  4. CYMBALTA [Concomitant]
     Active Substance: DULOXETINE HYDROCHLORIDE
  5. OXYCONTIN [Concomitant]
     Active Substance: OXYCODONE HYDROCHLORIDE
  6. DULERA [Concomitant]
     Active Substance: FORMOTEROL FUMARATE DIHYDRATE\MOMETASONE FUROATE
  7. LISINOPRIL. [Concomitant]
     Active Substance: LISINOPRIL
  8. PERCOCET [Concomitant]
     Active Substance: ACETAMINOPHEN\OXYCODONE HYDROCHLORIDE
  9. PROAIR HFA [Concomitant]
     Active Substance: ALBUTEROL SULFATE

REACTIONS (25)
  - Malaise [Unknown]
  - Rheumatoid arthritis [Unknown]
  - Depression [Unknown]
  - Arthropathy [Unknown]
  - Weight decreased [Unknown]
  - Stomatitis [Unknown]
  - Joint swelling [Unknown]
  - Sinusitis [Unknown]
  - Insomnia [Unknown]
  - Sleep disorder [Unknown]
  - Decreased appetite [Unknown]
  - Amnesia [Unknown]
  - Nasal ulcer [Unknown]
  - Rash [Unknown]
  - Therapy cessation [Not Recovered/Not Resolved]
  - Drug dose omission [Unknown]
  - Hypersomnia [Unknown]
  - Hospitalisation [Unknown]
  - Anxiety [Unknown]
  - Inflammation [Unknown]
  - Condition aggravated [Unknown]
  - Arthralgia [Unknown]
  - Gait disturbance [Unknown]
  - Fatigue [Unknown]
  - Disease recurrence [Unknown]

NARRATIVE: CASE EVENT DATE: 2016
